FAERS Safety Report 6218097-5 (Version None)
Quarter: 2009Q2

REPORT INFORMATION
  Report Type: 
  Country: None (occurrence: None)
  Receive Date: 20090608
  Receipt Date: 20090527
  Transmission Date: 20091009
  Serious: No
  Sender: FDA-Public Use
  Company Number: PHEH2009US05736

PATIENT
  Age: 64 Year
  Sex: Female
  Weight: 97.052 kg

DRUGS (5)
  1. DIOVAN [Suspect]
     Indication: HYPERTENSION
     Dosage: 1 DF, QD
  2. ROGAINE [Suspect]
     Indication: DRUG USE FOR UNKNOWN INDICATION
     Dosage: UNK
     Route: 061
  3. SIMVASTATIN [Concomitant]
     Indication: HYPERCHOLESTEROLAEMIA
     Dosage: 1 DF, QD
  4. ALPRAZOLAM [Concomitant]
     Indication: STRESS
     Dosage: 1-2 DF, QD
  5. ACETYLSALICYLIC ACID [Concomitant]
     Indication: PAIN
     Dosage: 81 MG, QD

REACTIONS (1)
  - OEDEMA PERIPHERAL [None]
